FAERS Safety Report 22207880 (Version 4)
Quarter: 2024Q3

REPORT INFORMATION
  Report Type: Report from Study
  Country: CN (occurrence: CN)
  Receive Date: 20230413
  Receipt Date: 20240909
  Transmission Date: 20241016
  Serious: Yes (Hospitalization)
  Sender: TAKEDA
  Company Number: CN-TAKEDA-2023TUS037664

PATIENT
  Age: 40 Year
  Sex: Male
  Weight: 63 kg

DRUGS (48)
  1. VEDOLIZUMAB [Suspect]
     Active Substance: VEDOLIZUMAB
     Indication: Colitis ulcerative
     Dosage: 300 MILLIGRAM
     Route: 042
     Dates: start: 20230208
  2. MESALAMINE [Concomitant]
     Active Substance: MESALAMINE
     Indication: Inflammatory bowel disease
     Dosage: 1 GRAM, TID
     Route: 048
     Dates: start: 20221124
  3. BACILLUS LICHENIFORMIS CAPSULE,LIVE [Concomitant]
     Indication: Inflammatory bowel disease
     Dosage: 0.5 GRAM, Q12H
     Route: 048
     Dates: start: 20220701
  4. BACILLUS LICHENIFORMIS CAPSULE,LIVE [Concomitant]
     Dosage: 0.5 GRAM, TID
     Route: 048
     Dates: start: 20230502, end: 20230511
  5. BACILLUS LICHENIFORMIS CAPSULE,LIVE [Concomitant]
     Dosage: 0.5 GRAM, TID
     Route: 048
     Dates: start: 20230530, end: 202307
  6. FERROUS SUCCINATE [Concomitant]
     Active Substance: FERROUS SUCCINATE
     Indication: Mineral supplementation
     Dosage: 0.1 GRAM, BID
     Route: 048
     Dates: start: 20230209
  7. FERROUS SUCCINATE [Concomitant]
     Active Substance: FERROUS SUCCINATE
     Dosage: 0.1 GRAM, BID
     Route: 048
     Dates: start: 20230908
  8. PREDNISONE ACETATE [Concomitant]
     Active Substance: PREDNISONE ACETATE
     Indication: Inflammatory bowel disease
     Dosage: 20 MILLIGRAM, BID
     Route: 048
     Dates: start: 20230210
  9. PREDNISONE ACETATE [Concomitant]
     Active Substance: PREDNISONE ACETATE
     Dosage: 10 MILLIGRAM, BID
     Route: 048
     Dates: start: 20230414, end: 20230420
  10. MOXIFLOXACIN HYDROCHLORIDE [Concomitant]
     Active Substance: MOXIFLOXACIN HYDROCHLORIDE\MOXIFLOXACIN HYDROCHLORIDE MONOHYDRATE
     Indication: Anti-infective therapy
     Dosage: 0.4 GRAM, QD
     Route: 042
     Dates: start: 20230218, end: 20230301
  11. MOXIFLOXACIN HYDROCHLORIDE [Concomitant]
     Active Substance: MOXIFLOXACIN HYDROCHLORIDE\MOXIFLOXACIN HYDROCHLORIDE MONOHYDRATE
     Dosage: 0.4 GRAM, QD
     Route: 042
     Dates: start: 20230429, end: 20230530
  12. MOXIFLOXACIN HYDROCHLORIDE [Concomitant]
     Active Substance: MOXIFLOXACIN HYDROCHLORIDE\MOXIFLOXACIN HYDROCHLORIDE MONOHYDRATE
     Dosage: 0.4 GRAM, QD
     Route: 042
     Dates: start: 20230506, end: 20230511
  13. TRANEXAMIC ACID [Concomitant]
     Active Substance: TRANEXAMIC ACID
     Indication: Haemostasis
     Dosage: 0.5 GRAM, BID
     Route: 042
     Dates: start: 20230218, end: 20230301
  14. ILAPRAZOLE [Concomitant]
     Active Substance: ILAPRAZOLE
     Indication: Gastrointestinal disorder prophylaxis
     Dosage: 10 MILLIGRAM, QD
     Route: 042
     Dates: start: 20230218, end: 20230301
  15. ILAPRAZOLE [Concomitant]
     Active Substance: ILAPRAZOLE
     Dosage: 10 MILLIGRAM, QD
     Route: 042
     Dates: start: 20230412, end: 20230420
  16. IRON SUCROSE [Concomitant]
     Active Substance: IRON SUCROSE
     Dosage: 100 MILLIGRAM, QOD
     Route: 042
     Dates: start: 20230218, end: 20230301
  17. IRON SUCROSE [Concomitant]
     Active Substance: IRON SUCROSE
     Dosage: 100 MILLIGRAM, QOD
     Route: 042
     Dates: start: 20230411, end: 20230420
  18. IRON SUCROSE [Concomitant]
     Active Substance: IRON SUCROSE
     Dosage: 100 MILLIGRAM, QOD
     Route: 042
     Dates: start: 20230510, end: 20230511
  19. UPADACITINIB [Concomitant]
     Active Substance: UPADACITINIB
     Indication: Inflammatory bowel disease
     Dosage: UNK UNK, QD
     Route: 048
     Dates: start: 20230222, end: 20230301
  20. SODIUM POTASSIUM MAGNESIUM CALCIUM AND GLUCOSE [Concomitant]
     Indication: Fluid imbalance
     Dosage: 500 MILLILITER, QD
     Route: 042
     Dates: start: 20230410, end: 20230420
  21. SODIUM POTASSIUM MAGNESIUM CALCIUM AND GLUCOSE [Concomitant]
     Dosage: 500 MILLILITER, QD
     Route: 042
     Dates: start: 20230429, end: 20230501
  22. POTASSIUM CHLORIDE [Concomitant]
     Active Substance: POTASSIUM CHLORIDE
     Indication: Fluid imbalance
     Dosage: 1 GRAM, QD
     Route: 042
     Dates: start: 20230410, end: 20230412
  23. POTASSIUM CHLORIDE [Concomitant]
     Active Substance: POTASSIUM CHLORIDE
     Indication: Mineral supplementation
     Dosage: 1.5 GRAM
     Route: 042
     Dates: start: 20230414, end: 20230414
  24. POTASSIUM CHLORIDE [Concomitant]
     Active Substance: POTASSIUM CHLORIDE
     Dosage: 1 GRAM, QD
     Route: 042
     Dates: start: 20230429, end: 20230511
  25. HYDROCORTISONE SODIUM SUCCINATE [Concomitant]
     Active Substance: HYDROCORTISONE SODIUM SUCCINATE
     Indication: Inflammatory bowel disease
     Dosage: 300 MILLIGRAM, QD
     Route: 042
     Dates: start: 20230410, end: 20230414
  26. HYDROCORTISONE SODIUM SUCCINATE [Concomitant]
     Active Substance: HYDROCORTISONE SODIUM SUCCINATE
     Dosage: 200 MILLIGRAM
     Route: 042
     Dates: start: 20230629, end: 20230629
  27. HYDROCORTISONE SODIUM SUCCINATE [Concomitant]
     Active Substance: HYDROCORTISONE SODIUM SUCCINATE
     Dosage: 300 MILLIGRAM
     Route: 042
     Dates: start: 20230711, end: 20230711
  28. PINAVERIUM BROMIDE [Concomitant]
     Active Substance: PINAVERIUM BROMIDE
     Indication: Tetany
     Dosage: 50 MILLIGRAM, TID
     Route: 048
     Dates: start: 20230410, end: 20230412
  29. PINAVERIUM BROMIDE [Concomitant]
     Active Substance: PINAVERIUM BROMIDE
     Indication: Analgesic therapy
  30. ALBUMIN PREPARED FROM HUMAN PLASMA [Concomitant]
     Indication: Protein deficiency
     Dosage: 10 GRAM, QD
     Route: 042
     Dates: start: 20230411, end: 20230417
  31. ALBUMIN PREPARED FROM HUMAN PLASMA [Concomitant]
     Dosage: 10 GRAM
     Route: 042
     Dates: start: 20230501, end: 20230506
  32. CALCIUM GLUCONATE [Concomitant]
     Active Substance: CALCIUM GLUCONATE
     Indication: Mineral supplementation
     Dosage: 1 GRAM, QD
     Route: 042
     Dates: start: 20230412, end: 20230418
  33. POTASSIUM CITRATE [Concomitant]
     Active Substance: POTASSIUM CITRATE
     Indication: Mineral supplementation
     Dosage: 60 MILLILITER
     Route: 048
     Dates: start: 20230414, end: 20230414
  34. LIDOCAINE HYDROCHLORIDE [Concomitant]
     Active Substance: LIDOCAINE HYDROCHLORIDE
     Indication: Deep vein thrombosis
     Dosage: 0.1 GRAM
     Dates: start: 20230415, end: 20230415
  35. DEXAMETHASONE SODIUM PHOSPHATE [Concomitant]
     Active Substance: DEXAMETHASONE PHOSPHATE\DEXAMETHASONE SODIUM PHOSPHATE
     Indication: Antiallergic therapy
     Dosage: 10 MILLIGRAM
     Route: 042
     Dates: start: 20230420, end: 20230420
  36. DEXAMETHASONE SODIUM PHOSPHATE [Concomitant]
     Active Substance: DEXAMETHASONE PHOSPHATE\DEXAMETHASONE SODIUM PHOSPHATE
     Indication: Prophylaxis
     Dosage: 5 MILLIGRAM
     Route: 042
     Dates: start: 20230508, end: 20230508
  37. DEXAMETHASONE SODIUM PHOSPHATE [Concomitant]
     Active Substance: DEXAMETHASONE PHOSPHATE\DEXAMETHASONE SODIUM PHOSPHATE
     Dosage: 5 MILLIGRAM
     Route: 042
     Dates: start: 20230530, end: 20230530
  38. Compound Eosinophil Lactobacillus [Concomitant]
     Indication: Inflammatory bowel disease
     Dosage: 1 GRAM, TID
     Route: 048
     Dates: start: 20230420
  39. INFLIXIMAB [Concomitant]
     Active Substance: INFLIXIMAB
     Indication: Inflammatory bowel disease
     Dosage: 0.3 GRAM
     Route: 042
     Dates: start: 20230508, end: 20230508
  40. INFLIXIMAB [Concomitant]
     Active Substance: INFLIXIMAB
     Dosage: 0.3 GRAM
     Route: 042
     Dates: start: 20230530, end: 20230530
  41. LEVOFLOXACIN [Concomitant]
     Active Substance: LEVOFLOXACIN
     Indication: Anti-infective therapy
     Dosage: 0.5 GRAM, QD
     Route: 042
     Dates: start: 20230429, end: 20230429
  42. CARBAZOCHROME SODIUM SULFONATE [Concomitant]
     Active Substance: CARBAZOCHROME SODIUM SULFONATE
     Indication: Haemostasis
     Dosage: 80 MILLIGRAM, QD
     Route: 042
     Dates: start: 20230430, end: 20230510
  43. BIAPENEM [Concomitant]
     Active Substance: BIAPENEM
     Indication: Anti-infective therapy
     Dosage: 0.3 GRAM, TID
     Route: 042
     Dates: start: 20230430, end: 20230506
  44. PROMETHAZINE HYDROCHLORIDE [Concomitant]
     Active Substance: PROMETHAZINE HYDROCHLORIDE
     Indication: Antiallergic therapy
     Dosage: 12.5 MILLIGRAM
     Route: 030
     Dates: start: 20230510, end: 20230510
  45. Compound glutamine [Concomitant]
     Indication: Inflammatory bowel disease
     Dosage: UNK UNK, BID
     Route: 048
     Dates: start: 20230629, end: 202307
  46. AZATHIOPRINE [Concomitant]
     Active Substance: AZATHIOPRINE
     Indication: Inflammatory bowel disease
     Dosage: 50 MILLIGRAM, BID
     Route: 048
     Dates: start: 20230711
  47. USTEKINUMAB [Concomitant]
     Active Substance: USTEKINUMAB
     Indication: Inflammatory bowel disease
     Dosage: 90 MILLIGRAM
     Route: 058
     Dates: start: 20230908, end: 20230908
  48. Live combined bifidobacterium, lactobacillus and enterococcus [Concomitant]
     Indication: Inflammatory bowel disease
     Dosage: 0.42 GRAM, BID
     Route: 048
     Dates: start: 20230908

REACTIONS (1)
  - Diarrhoea [Recovered/Resolved]

NARRATIVE: CASE EVENT DATE: 20230328
